FAERS Safety Report 8007724-8 (Version None)
Quarter: 2011Q4

REPORT INFORMATION
  Report Type: 
  Country: None (occurrence: None)
  Receive Date: 20111227
  Receipt Date: 20111213
  Transmission Date: 20120403
  Serious: Yes (Other)
  Sender: FDA-Public Use
  Company Number: US-ELI_LILLY_AND_COMPANY-US201108001249

PATIENT
  Sex: Female

DRUGS (2)
  1. FORTEO [Suspect]
     Indication: OSTEOPOROSIS
     Dosage: 20 UG, QD
     Route: 065
  2. FORTEO [Suspect]
     Dosage: 20 UG, QD
     Route: 065

REACTIONS (13)
  - NIGHT SWEATS [None]
  - MACULAR DEGENERATION [None]
  - MOBILITY DECREASED [None]
  - INSOMNIA [None]
  - DIZZINESS [None]
  - ARTHRALGIA [None]
  - SKIN REACTION [None]
  - BURNING SENSATION [None]
  - VISUAL ACUITY REDUCED [None]
  - MIGRAINE [None]
  - HEADACHE [None]
  - PAIN [None]
  - FEEDING DISORDER [None]
